FAERS Safety Report 8339427-4 (Version None)
Quarter: 2012Q2

REPORT INFORMATION
  Report Type: 
  Country: None (occurrence: None)
  Receive Date: 20120507
  Receipt Date: 20120502
  Transmission Date: 20120825
  Serious: No
  Sender: FDA-Public Use
  Company Number: US-BAYER-2012-043259

PATIENT
  Age: 81 Year
  Sex: Female
  Weight: 73 kg

DRUGS (2)
  1. OMEPRAZOLE [Concomitant]
  2. NAPROXEN SODIUM [Suspect]
     Indication: ANALGESIC THERAPY
     Dosage: 1 DF, BID
     Route: 048
     Dates: start: 20120426, end: 20120501

REACTIONS (1)
  - PAIN [None]
